FAERS Safety Report 20951827 (Version 7)
Quarter: 2023Q4

REPORT INFORMATION
  Report Type: Report from Study
  Country: DE (occurrence: DE)
  Receive Date: 20220613
  Receipt Date: 20231017
  Transmission Date: 20240110
  Serious: Yes (Hospitalization)
  Sender: FDA-Public Use
  Company Number: DE-BAYER-2022A080018

PATIENT
  Age: 76 Year
  Sex: Male

DRUGS (1)
  1. VENTAVIS [Suspect]
     Active Substance: ILOPROST
     Indication: Pulmonary arterial hypertension
     Dosage: UNK
     Route: 055
     Dates: start: 20220519

REACTIONS (5)
  - Diarrhoea [Recovered/Resolved]
  - Asthenia [Unknown]
  - Diarrhoea [Not Recovered/Not Resolved]
  - Device difficult to use [Unknown]
  - Incorrect dose administered by device [Unknown]

NARRATIVE: CASE EVENT DATE: 20220601
